FAERS Safety Report 9008793 (Version 1)
Quarter: 2013Q1

REPORT INFORMATION
  Report Type: Spontaneous
  Country: US (occurrence: US)
  Receive Date: 20130111
  Receipt Date: 20130111
  Transmission Date: 20140127
  Serious: No
  Sender: FDA-Public Use
  Company Number: US-TEVA-379990USA

PATIENT
  Sex: Female

DRUGS (10)
  1. COPAXONE [Suspect]
     Indication: MULTIPLE SCLEROSIS
     Dosage: 20 MILLIGRAM DAILY;
     Dates: start: 2010
  2. MS CONTIN [Concomitant]
  3. SYNTHROID [Concomitant]
  4. BUSPAR [Concomitant]
  5. VENTOLIN [Concomitant]
  6. AMLODIPINE [Concomitant]
  7. TORSEMIDE [Concomitant]
  8. NEURONTIN [Concomitant]
  9. CITALOPRAM [Concomitant]
  10. ZANAFLEX [Concomitant]

REACTIONS (4)
  - Immediate post-injection reaction [Recovered/Resolved]
  - Dyspnoea [Recovered/Resolved]
  - Flushing [Recovered/Resolved]
  - Diarrhoea [Recovered/Resolved]
